FAERS Safety Report 20051980 (Version 1)
Quarter: 2021Q4

REPORT INFORMATION
  Report Type: Spontaneous
  Country: US (occurrence: US)
  Receive Date: 20211110
  Receipt Date: 20211110
  Transmission Date: 20220303
  Serious: Yes (Other)
  Sender: FDA-Public Use
  Company Number: US-GLAXOSMITHKLINE-US2021GSK228897

PATIENT
  Sex: Male

DRUGS (4)
  1. RANITIDINE [Suspect]
     Active Substance: RANITIDINE
     Indication: Gastrooesophageal reflux disease
     Dosage: UNK, QD
     Route: 065
     Dates: start: 201001, end: 202004
  2. RANITIDINE [Suspect]
     Active Substance: RANITIDINE
     Indication: Hiatus hernia
  3. RANITIDINE [Suspect]
     Active Substance: RANITIDINE
     Indication: Gastrooesophageal reflux disease
     Dosage: UNK, QD
     Route: 065
     Dates: start: 201001, end: 202004
  4. RANITIDINE [Suspect]
     Active Substance: RANITIDINE
     Indication: Hiatus hernia

REACTIONS (1)
  - Renal cancer [Unknown]
